FAERS Safety Report 9407160 (Version 1)
Quarter: 2013Q3

REPORT INFORMATION
  Report Type: Spontaneous
  Country: AU (occurrence: AU)
  Receive Date: 20130718
  Receipt Date: 20130718
  Transmission Date: 20140515
  Serious: Yes (Hospitalization)
  Sender: FDA-Public Use
  Company Number: PHHY2013AU075968

PATIENT
  Age: 80 Year
  Sex: Male

DRUGS (13)
  1. SERTRALINE HYDROCHLORIDE [Suspect]
     Dosage: 100 MG, UNK
     Dates: start: 20130204, end: 20130225
  2. RASAGILINE MESYLATE [Suspect]
     Dosage: 1 MG, UNK
     Dates: start: 20130131, end: 20130225
  3. ATORVASTATIN [Concomitant]
     Dosage: 40 MG, UNK
  4. CALTRATE + D [Concomitant]
  5. CLOPIDOGREL [Concomitant]
  6. COLOXYL [Concomitant]
     Dosage: 120 MG, UNK
  7. FLUDROCORTISONE [Concomitant]
  8. GABAPENTIN [Concomitant]
     Dosage: 100 MG, UNK
     Dates: start: 20130214, end: 20130225
  9. MADOPAR [Concomitant]
     Dosage: 100 MG, UNK
  10. OXYBUTYNIN HYDROCHLORIDE [Concomitant]
  11. PANTOPRAZOLE [Concomitant]
     Dosage: 40 MG, UNK
  12. PARACETAMOL [Concomitant]
  13. SINEMET-CR [Concomitant]
     Dosage: 200 OT, UNK

REACTIONS (9)
  - Cerebral infarction [Unknown]
  - Parkinsonism [Unknown]
  - Serotonin syndrome [Recovered/Resolved]
  - Hypertonia [Unknown]
  - Muscle rigidity [Unknown]
  - Clonus [Unknown]
  - Confusional state [Recovered/Resolved]
  - Myoclonus [Recovered/Resolved]
  - Somnolence [Recovered/Resolved]
